FAERS Safety Report 4723412-5 (Version None)
Quarter: 2005Q3

REPORT INFORMATION
  Report Type: 
  Country: None (occurrence: None)
  Receive Date: 20050721
  Receipt Date: 20050721
  Transmission Date: 20060218
  Serious: Yes (Hospitalization)
  Sender: FDA-Public Use
  Company Number: None

PATIENT
  Age: 61 Year
  Sex: Female

DRUGS (1)
  1. CEPHALEXIN [Suspect]
     Indication: STEVENS-JOHNSON SYNDROME

REACTIONS (2)
  - ANAPHYLACTIC REACTION [None]
  - STEVENS-JOHNSON SYNDROME [None]
